FAERS Safety Report 9790085 (Version 1)
Quarter: 2013Q4

REPORT INFORMATION
  Report Type: Spontaneous
  Country: US (occurrence: None)
  Receive Date: 20131230
  Receipt Date: 20131230
  Transmission Date: 20140711
  Serious: Yes (Other)
  Sender: FDA-Public Use
  Company Number: None

PATIENT
  Age: 14 Month
  Sex: Male
  Weight: 10.43 kg

DRUGS (2)
  1. HYLANDS TEETHING TABLETS [Suspect]
     Indication: TEETHING
     Dosage: 2 TABLETS
     Route: 048
     Dates: start: 20131129, end: 20131130
  2. HYLANDS TEETHING TABLETS [Suspect]
     Indication: IRRITABILITY
     Dosage: 2 TABLETS
     Route: 048
     Dates: start: 20131129, end: 20131130

REACTIONS (4)
  - Grunting [None]
  - Restlessness [None]
  - Somnolence [None]
  - Convulsion [None]
